FAERS Safety Report 21007887 (Version 5)
Quarter: 2023Q2

REPORT INFORMATION
  Report Type: Report from Study
  Country: US (occurrence: US)
  Receive Date: 20220627
  Receipt Date: 20230510
  Transmission Date: 20230721
  Serious: Yes (Other)
  Sender: FDA-Public Use
  Company Number: US-ABBVIE-22K-163-4372545-00

PATIENT
  Age: 63 Year
  Sex: Female

DRUGS (5)
  1. HUMIRA [Suspect]
     Active Substance: ADALIMUMAB
     Indication: Rheumatoid arthritis
     Dosage: CITRATE FREE?FORM STRENGTH 40 MILLIGRAMS
     Route: 058
  2. HUMIRA [Suspect]
     Active Substance: ADALIMUMAB
     Dosage: CITRATE FREE?FORM STRENGTH 40 MILLIGRAMS
     Route: 058
     Dates: start: 20211217
  3. PFIZER-BIONTECH COVID-19 VACCINE [Concomitant]
     Active Substance: TOZINAMERAN
     Indication: COVID-19 immunisation
     Dosage: TIME INTERVAL: 1 TOTAL: FIRST DOSE
     Route: 030
  4. PFIZER-BIONTECH COVID-19 VACCINE [Concomitant]
     Active Substance: TOZINAMERAN
     Indication: COVID-19 immunisation
     Dosage: TIME INTERVAL: 1 TOTAL: SECOND DOSE
     Route: 030
  5. PFIZER-BIONTECH COVID-19 VACCINE [Concomitant]
     Active Substance: TOZINAMERAN
     Indication: COVID-19 immunisation
     Dosage: TIME INTERVAL: 1 TOTAL: BOOSTER DOSE
     Route: 030
     Dates: start: 20211110, end: 20211110

REACTIONS (12)
  - Cartilage atrophy [Not Recovered/Not Resolved]
  - Calcinosis [Unknown]
  - Autoimmune thyroid disorder [Not Recovered/Not Resolved]
  - Lumbosacral radiculopathy [Unknown]
  - Femoroacetabular impingement [Not Recovered/Not Resolved]
  - Contusion [Not Recovered/Not Resolved]
  - COVID-19 [Recovered/Resolved]
  - Rheumatoid arthritis [Recovering/Resolving]
  - Bone deformity [Unknown]
  - Joint effusion [Unknown]
  - Spinal operation [Recovering/Resolving]
  - Gait disturbance [Unknown]

NARRATIVE: CASE EVENT DATE: 20220701
